FAERS Safety Report 24075256 (Version 1)
Quarter: 2024Q3

REPORT INFORMATION
  Report Type: Other
  Country: US (occurrence: US)
  Receive Date: 20240710
  Receipt Date: 20240710
  Transmission Date: 20241017
  Serious: Yes (Hospitalization)
  Sender: ALVOGEN
  Company Number: US-ALVOGEN-2024094989

PATIENT
  Sex: Male

DRUGS (5)
  1. AMPHETAMINE [Suspect]
     Active Substance: AMPHETAMINE
     Indication: Substance abuse
     Dosage: PRIOR HOSPITALIZATION IN 2019
  2. AMPHETAMINE [Suspect]
     Active Substance: AMPHETAMINE
     Indication: Substance abuse
     Dosage: ADMITTED TO THE ER IN 2022.
  3. COCAINE [Suspect]
     Active Substance: COCAINE
     Indication: Substance abuse
     Dosage: PRIOR HOSPITALIZATION IN 2019
  4. COCAINE [Suspect]
     Active Substance: COCAINE
     Indication: Substance abuse
     Dosage: ABSTINENT FOR APPROX 4 MONTHS.?ADMITTED TO THE ER IN 2022.
  5. CANNABIDIOL\HERBALS [Suspect]
     Active Substance: CANNABIDIOL\HERBALS
     Indication: Substance abuse
     Dosage: PRIOR HOSPITALIZATION IN 2019

REACTIONS (12)
  - Toxicity to various agents [Unknown]
  - Cardiac arrest [Unknown]
  - Haemodynamic instability [Unknown]
  - Multiple organ dysfunction syndrome [Unknown]
  - Hypoxic-ischaemic encephalopathy [Unknown]
  - Brain death [Unknown]
  - Respiratory failure [Unknown]
  - Cardiogenic shock [Unknown]
  - Acute kidney injury [Unknown]
  - Dilated cardiomyopathy [Unknown]
  - Drug abuse [Unknown]
  - Overdose [Unknown]

NARRATIVE: CASE EVENT DATE: 20190101
